FAERS Safety Report 8989050 (Version 1)
Quarter: 2012Q4

REPORT INFORMATION
  Report Type: Spontaneous
  Country: IE (occurrence: None)
  Receive Date: 20121218
  Receipt Date: 20121218
  Transmission Date: 20130627
  Serious: Yes (Other)
  Sender: FDA-Public Use
  Company Number: DSA_61353_2012

PATIENT
  Age: 94 Year
  Sex: Female

DRUGS (1)
  1. FLAGYL [Suspect]
     Indication: INFECTION
     Dosage: (not otherwise specified)
     Route: 042
     Dates: start: 20121109, end: 20121109

REACTIONS (1)
  - Rash pruritic [None]
